FAERS Safety Report 7804507-6 (Version None)
Quarter: 2011Q4

REPORT INFORMATION
  Report Type: 
  Country: None (occurrence: None)
  Receive Date: 20111010
  Receipt Date: 20110927
  Transmission Date: 20120403
  Serious: Yes (Hospitalization)
  Sender: FDA-Public Use
  Company Number: PHHY2011GB88131

PATIENT
  Sex: Male

DRUGS (1)
  1. ZADITEN [Suspect]
     Indication: ENTEROCOLITIS
     Route: 048

REACTIONS (2)
  - DIARRHOEA [None]
  - VOMITING [None]
